FAERS Safety Report 21673529 (Version 4)
Quarter: 2023Q1

REPORT INFORMATION
  Report Type: Report from Study
  Country: FR (occurrence: FR)
  Receive Date: 20221202
  Receipt Date: 20230109
  Transmission Date: 20230418
  Serious: Yes (Death, Life-Threatening, Hospitalization, Other)
  Sender: FDA-Public Use
  Company Number: FR-GILEAD-2022-0598565

PATIENT
  Age: 75 Year
  Sex: Female
  Weight: 62 kg

DRUGS (3)
  1. ONDANSETRON [Suspect]
     Active Substance: ONDANSETRON
     Indication: Product used for unknown indication
     Dosage: UNK
     Route: 065
  2. SACITUZUMAB GOVITECAN [Suspect]
     Active Substance: SACITUZUMAB GOVITECAN
     Indication: Triple negative breast cancer
     Dosage: 10 MG/KG, D1, D8, CYCLE OF 21 DAYS
     Route: 042
     Dates: start: 20220912, end: 20220930
  3. SACITUZUMAB GOVITECAN [Suspect]
     Active Substance: SACITUZUMAB GOVITECAN
     Dosage: 10 MG/KG
     Route: 042

REACTIONS (17)
  - Death [Fatal]
  - Gastrointestinal haemorrhage [Fatal]
  - Angiodysplasia [Fatal]
  - Agranulocytosis [Fatal]
  - Enterocolitis [Fatal]
  - Prerenal failure [Fatal]
  - Sepsis [Fatal]
  - General physical health deterioration [Fatal]
  - Haemodynamic instability [Fatal]
  - Haematotoxicity [Recovered/Resolved with Sequelae]
  - Renal failure [Not Recovered/Not Resolved]
  - Hospitalisation [Not Recovered/Not Resolved]
  - Hyperhidrosis [Recovered/Resolved]
  - Adverse event [Unknown]
  - Vomiting [Recovered/Resolved]
  - Diarrhoea [Not Recovered/Not Resolved]
  - Constipation [Recovered/Resolved]

NARRATIVE: CASE EVENT DATE: 20220913
